FAERS Safety Report 4545122-X (Version None)
Quarter: 2004Q4

REPORT INFORMATION
  Report Type: 
  Country: None (occurrence: None)
  Receive Date: 20041222
  Receipt Date: 20041011
  Transmission Date: 20050328
  Serious: Yes (Hospitalization, Other)
  Sender: FDA-Public Use
  Company Number: US_001255841

PATIENT
  Age: 68 Year
  Sex: Female
  Weight: 75 kg

DRUGS (10)
  1. HUMALOG [Suspect]
     Indication: DIABETES MELLITUS
     Dates: start: 19960101
  2. HUMULIN L [Suspect]
     Indication: DIABETES MELLITUS
     Dosage: 14 U/1 AT BEDTIME
     Dates: start: 19460101
  3. HUMULIN U [Suspect]
     Indication: DIABETES MELLITUS
     Dosage: 10 U/1 IN THE MORNING
     Dates: start: 19960101
  4. HUMULIN N [Suspect]
     Indication: DIABETES MELLITUS
  5. HUMULIN R [Suspect]
     Indication: DIABETES MELLITUS
  6. LANTUS [Concomitant]
  7. ENALAPRIL [Concomitant]
  8. GLUCOSAMINE SULFATE [Concomitant]
  9. ZYRTEC [Concomitant]
  10. MULTI-VITAMIN [Concomitant]

REACTIONS (7)
  - HYPERGLYCAEMIA [None]
  - HYPOGLYCAEMIA [None]
  - INJECTION SITE FIBROSIS [None]
  - INJECTION SITE HAEMORRHAGE [None]
  - INJECTION SITE PAIN [None]
  - LOSS OF CONSCIOUSNESS [None]
  - MITRAL VALVE PROLAPSE [None]
